FAERS Safety Report 6782706-2 (Version None)
Quarter: 2010Q2

REPORT INFORMATION
  Report Type: 
  Country: None (occurrence: None)
  Receive Date: 20100621
  Receipt Date: 20100608
  Transmission Date: 20101027
  Serious: Yes (Hospitalization)
  Sender: FDA-Public Use
  Company Number: US-ELI_LILLY_AND_COMPANY-US201006002767

PATIENT
  Sex: Female

DRUGS (11)
  1. CYMBALTA [Suspect]
     Indication: NEUROPATHY PERIPHERAL
     Dosage: 30 MG, DAILY (1/D)
  2. CYMBALTA [Suspect]
     Dosage: 60 MG, DAILY (1/D)
  3. CYMBALTA [Suspect]
     Dosage: 90 MG, DAILY (1/D)
     Dates: end: 20100205
  4. CYMBALTA [Suspect]
     Dosage: 180 MG, DAILY (1/D)
     Dates: start: 20100205, end: 20100219
  5. CYMBALTA [Suspect]
     Dosage: 30 MG, DAILY (1/D)
  6. CYMBALTA [Suspect]
     Dosage: 60 MG, DAILY (1/D)
  7. FOLIC ACID [Concomitant]
  8. METHOTREXATE [Concomitant]
  9. HYDROCODONE [Concomitant]
  10. AMBIEN [Concomitant]
  11. PREDNISONE [Concomitant]

REACTIONS (20)
  - ABDOMINAL DISTENSION [None]
  - ACCIDENTAL OVERDOSE [None]
  - CHOLELITHIASIS [None]
  - CONSTIPATION [None]
  - CRYING [None]
  - CYSTITIS [None]
  - DEPRESSION [None]
  - DIARRHOEA [None]
  - DYSURIA [None]
  - EXOPHTHALMOS [None]
  - FLATULENCE [None]
  - HEADACHE [None]
  - INSOMNIA [None]
  - MALAISE [None]
  - MEDICATION ERROR [None]
  - NAUSEA [None]
  - NERVOUSNESS [None]
  - OFF LABEL USE [None]
  - PANIC ATTACK [None]
  - TREMOR [None]
